FAERS Safety Report 4591047-3 (Version None)
Quarter: 2005Q1

REPORT INFORMATION
  Report Type: 
  Country: None (occurrence: None)
  Receive Date: 20050222
  Receipt Date: 20050222
  Transmission Date: 20050727
  Serious: Yes (Life-Threatening)
  Sender: FDA-Public Use
  Company Number: None

PATIENT
  Sex: Female
  Weight: 41.7309 kg

DRUGS (7)
  1. AVASTIN [Suspect]
     Indication: COLON CANCER STAGE IV
     Dosage: 250MG  X 1 ON 2/4/200 INTRAVENOUS
     Route: 042
     Dates: start: 20050204, end: 20050204
  2. GRANISETRON [Concomitant]
  3. DEXAMETHASONE [Concomitant]
  4. OXALIPLATIN [Concomitant]
  5. LEUCOVORIN [Concomitant]
  6. FLUOROURACIL [Concomitant]
  7. PEG-FILGRASTIM [Concomitant]

REACTIONS (1)
  - CEREBRAL HAEMORRHAGE [None]
